FAERS Safety Report 8520608-1 (Version None)
Quarter: 2012Q3

REPORT INFORMATION
  Report Type: 
  Country: None (occurrence: None)
  Receive Date: 20120719
  Receipt Date: 20120713
  Transmission Date: 20120928
  Serious: Yes (Other)
  Sender: FDA-Public Use
  Company Number: FI-PFIZER INC-2012168845

PATIENT
  Sex: Male

DRUGS (2)
  1. SILDENAFIL CITRATE [Suspect]
     Dosage: 100 MG, 1X/DAY
     Route: 048
     Dates: start: 20120609, end: 20120609
  2. MUSE [Interacting]
     Dosage: UNK
     Route: 066
     Dates: start: 20120609, end: 20120617

REACTIONS (5)
  - DIZZINESS [None]
  - DRUG INTERACTION [None]
  - BLOOD PRESSURE DECREASED [None]
  - DRUG INEFFECTIVE [None]
  - PAIN [None]
